FAERS Safety Report 6341738-9 (Version None)
Quarter: 2009Q3

REPORT INFORMATION
  Report Type: 
  Country: None (occurrence: None)
  Receive Date: 20090904
  Receipt Date: 20090824
  Transmission Date: 20100115
  Serious: Yes (Other)
  Sender: FDA-Public Use
  Company Number: DE-PFIZER INC-2009258602

PATIENT
  Age: 3 Week

DRUGS (8)
  1. PRO-EPANUTIN [Suspect]
     Dosage: UNK
     Route: 042
     Dates: start: 20090724, end: 20090726
  2. PRO-EPANUTIN [Suspect]
     Route: 030
  3. DOPAMINE HYDROCHLORIDE [Concomitant]
  4. DOBUTAMINE [Concomitant]
  5. LASIX [Concomitant]
     Dosage: UNK
  6. DIAZEPAM [Concomitant]
  7. VANCOMYCIN [Concomitant]
  8. MERONEM [Concomitant]

REACTIONS (3)
  - ATRIOVENTRICULAR BLOCK SECOND DEGREE [None]
  - BRADYARRHYTHMIA [None]
  - HYPOTENSION [None]
